FAERS Safety Report 14202413 (Version 1)
Quarter: 2017Q4

REPORT INFORMATION
  Report Type: Spontaneous
  Country: US (occurrence: US)
  Receive Date: 20171117
  Receipt Date: 20171117
  Transmission Date: 20180321
  Serious: No
  Sender: FDA-Public Use
  Company Number: US-009507513-1711USA000147

PATIENT
  Age: 39 Year
  Sex: Female
  Weight: 63.49 kg

DRUGS (1)
  1. NEXPLANON [Suspect]
     Active Substance: ETONOGESTREL
     Indication: CONTRACEPTION
     Dosage: 3 YEAR IMPLANT, IN LEFT ARM
     Route: 059
     Dates: start: 20170426

REACTIONS (6)
  - Hypoaesthesia [Unknown]
  - Menstruation delayed [Unknown]
  - Rash [Unknown]
  - Menstruation irregular [Unknown]
  - Metrorrhagia [Unknown]
  - Menorrhagia [Unknown]

NARRATIVE: CASE EVENT DATE: 2017
